FAERS Safety Report 5981875-1 (Version None)
Quarter: 2008Q4

REPORT INFORMATION
  Report Type: 
  Country: None (occurrence: None)
  Receive Date: 20081205
  Receipt Date: 20081128
  Transmission Date: 20090506
  Serious: Yes (Life-Threatening, Hospitalization)
  Sender: FDA-Public Use
  Company Number: JP-GENENTECH-270055

PATIENT
  Sex: Male

DRUGS (10)
  1. RITUXAN [Suspect]
     Indication: LYMPHOCYTIC LYMPHOMA
     Dosage: 640 MG, ^DAY 1^
     Route: 042
     Dates: start: 20061212, end: 20070312
  2. FLUDARABINE PHOSPHATE [Suspect]
     Indication: LYMPHOCYTIC LYMPHOMA
     Dosage: 42 MG, DAYS 2-4
     Route: 042
     Dates: start: 20061213, end: 20070315
  3. CYCLOPHOSPHAMIDE [Suspect]
     Indication: LYMPHOCYTIC LYMPHOMA
     Dosage: 420 MG, DAYS 2-4
     Route: 042
     Dates: start: 20061213, end: 20070315
  4. KYTRIL [Concomitant]
     Indication: PROPHYLACTIC CHEMOTHERAPY
     Dosage: 3 MG, DAYS 2-4
     Route: 042
     Dates: start: 20061213, end: 20070315
  5. POLARAMINE [Concomitant]
     Indication: PROPHYLACTIC CHEMOTHERAPY
     Dosage: 5 MG, UNK
     Route: 042
     Dates: start: 20061212, end: 20070312
  6. SAXIZON [Concomitant]
     Indication: PROPHYLACTIC CHEMOTHERAPY
     Dosage: 100 MG, DAY 1
     Route: 042
     Dates: start: 20061212, end: 20070312
  7. PYRINAZIN (JAPAN) [Concomitant]
     Indication: PROPHYLACTIC CHEMOTHERAPY
     Dosage: 500 MG, DAY 1
     Route: 048
     Dates: start: 20061212, end: 20070312
  8. ZANTAC [Concomitant]
     Indication: GASTRITIS
     Dosage: 150 MG, QD
     Route: 048
     Dates: start: 20061219, end: 20070427
  9. COTRIM [Concomitant]
     Indication: PROPHYLAXIS
     Dosage: 1 TABLET, QD
     Route: 048
     Dates: start: 20061219, end: 20070427
  10. ITRIZOLE [Concomitant]
     Indication: PROPHYLAXIS
     Dosage: 150 MG, QD
     Route: 048
     Dates: start: 20061219, end: 20070427

REACTIONS (1)
  - ADENOVIRAL HAEMORRHAGIC CYSTITIS [None]
